FAERS Safety Report 7345083-4 (Version None)
Quarter: 2011Q1

REPORT INFORMATION
  Report Type: 
  Country: None (occurrence: None)
  Receive Date: 20110310
  Receipt Date: 20110302
  Transmission Date: 20110831
  Serious: Yes (Other)
  Sender: FDA-Public Use
  Company Number: ZA-SANOFI-AVENTIS-2011SA013437

PATIENT
  Age: 18 Year
  Sex: Female

DRUGS (4)
  1. LANTUS [Suspect]
     Route: 058
  2. APIDRA [Suspect]
     Route: 058
  3. APIDRA [Suspect]
     Route: 058
  4. LANTUS [Suspect]
     Route: 058

REACTIONS (2)
  - HYPOGLYCAEMIC SEIZURE [None]
  - DIABETIC KETOACIDOSIS [None]
